FAERS Safety Report 17351994 (Version 3)
Quarter: 2020Q1

REPORT INFORMATION
  Report Type: Spontaneous
  Country: JP (occurrence: JP)
  Receive Date: 20200130
  Receipt Date: 20200228
  Transmission Date: 20200409
  Serious: Yes (Death, Hospitalization, Other)
  Sender: FDA-Public Use
  Company Number: JP-BAYER-2020-014307

PATIENT
  Age: 69 Year
  Sex: Male
  Weight: 64 kg

DRUGS (9)
  1. FUROSEMIDE. [Concomitant]
     Active Substance: FUROSEMIDE
  2. STIVARGA [Suspect]
     Active Substance: REGORAFENIB
     Indication: METASTASES TO PERITONEUM
  3. STIVARGA [Suspect]
     Active Substance: REGORAFENIB
     Indication: COLON CANCER
     Dosage: 160 MG, QD
     Route: 048
     Dates: start: 20191121, end: 20191212
  4. TEPRENONE [Concomitant]
     Active Substance: TEPRENONE
  5. FEXOFENADINE HYDROCHLORIDE. [Concomitant]
     Active Substance: FEXOFENADINE HYDROCHLORIDE
  6. PRAMIEL [METOCLOPRAMIDE] [Concomitant]
  7. STIVARGA [Suspect]
     Active Substance: REGORAFENIB
     Indication: MALIGNANT ASCITES
  8. LOPERAMIDE [Concomitant]
     Active Substance: LOPERAMIDE
  9. EQUMET [Concomitant]
     Active Substance: METFORMIN HYDROCHLORIDE\VILDAGLIPTIN

REACTIONS (8)
  - Decreased appetite [Fatal]
  - Hypophagia [None]
  - Metastases to peritoneum [Fatal]
  - Blood bilirubin increased [Fatal]
  - Ammonia increased [Fatal]
  - Depressed level of consciousness [None]
  - Hepatic failure [Fatal]
  - Altered state of consciousness [None]

NARRATIVE: CASE EVENT DATE: 20191213
